FAERS Safety Report 5797254-6 (Version None)
Quarter: 2008Q2

REPORT INFORMATION
  Report Type: 
  Country: None (occurrence: None)
  Receive Date: 20080627
  Receipt Date: 20080611
  Transmission Date: 20081010
  Serious: Yes (Hospitalization, Other)
  Sender: FDA-Public Use
  Company Number: A-JP2007-16795

PATIENT
  Age: 18 Year
  Sex: Female
  Weight: 39 kg

DRUGS (9)
  1. TRACLEER [Suspect]
     Indication: PULMONARY HYPERTENSION
     Dosage: 62.5 MG, BID, ORAL ; 31.25 MG, BID, ORAL; 15.625 MG, BID, ORAL; 31.25 MG, BID, ORAL; 62.5 MG, ORAL
     Route: 048
     Dates: start: 20060731, end: 20060921
  2. TRACLEER [Suspect]
     Indication: PULMONARY HYPERTENSION
     Dosage: 62.5 MG, BID, ORAL ; 31.25 MG, BID, ORAL; 15.625 MG, BID, ORAL; 31.25 MG, BID, ORAL; 62.5 MG, ORAL
     Route: 048
     Dates: start: 20060922, end: 20070115
  3. TRACLEER [Suspect]
     Indication: PULMONARY HYPERTENSION
     Dosage: 62.5 MG, BID, ORAL ; 31.25 MG, BID, ORAL; 15.625 MG, BID, ORAL; 31.25 MG, BID, ORAL; 62.5 MG, ORAL
     Route: 048
     Dates: start: 20070120, end: 20070205
  4. TRACLEER [Suspect]
     Indication: PULMONARY HYPERTENSION
     Dosage: 62.5 MG, BID, ORAL ; 31.25 MG, BID, ORAL; 15.625 MG, BID, ORAL; 31.25 MG, BID, ORAL; 62.5 MG, ORAL
     Route: 048
     Dates: start: 20070217, end: 20070221
  5. TRACLEER [Suspect]
     Indication: PULMONARY HYPERTENSION
     Dosage: 62.5 MG, BID, ORAL ; 31.25 MG, BID, ORAL; 15.625 MG, BID, ORAL; 31.25 MG, BID, ORAL; 62.5 MG, ORAL
     Route: 048
     Dates: start: 20070222, end: 20070306
  6. TRACLEER [Suspect]
     Indication: PULMONARY HYPERTENSION
     Dosage: 62.5 MG, BID, ORAL ; 31.25 MG, BID, ORAL; 15.625 MG, BID, ORAL; 31.25 MG, BID, ORAL; 62.5 MG, ORAL
     Route: 048
     Dates: start: 20070307, end: 20070626
  7. BERAPROST SODIUM(BERAPROST SODIUM) [Suspect]
  8. DIGOXIN [Concomitant]
  9. OXYGEN (OXYGEN) [Concomitant]

REACTIONS (3)
  - HAEMOPTYSIS [None]
  - PULMONARY ARTERY ANEURYSM [None]
  - PULMONARY HAEMORRHAGE [None]
